FAERS Safety Report 4353715-8 (Version None)
Quarter: 2004Q2

REPORT INFORMATION
  Report Type: 
  Country: None (occurrence: None)
  Receive Date: 20040505
  Receipt Date: 20040413
  Transmission Date: 20050107
  Serious: Yes (Hospitalization, Other)
  Sender: FDA-Public Use
  Company Number: US-BRISTOL-MYERS SQUIBB COMPANY-12565446

PATIENT
  Age: 60 Year
  Sex: Male

DRUGS (2)
  1. ERBITUX [Suspect]
     Indication: COLORECTAL CANCER
     Dosage: 1ST INFUSION 12-APR-2004, 400 MG/M2(800 MG). 2ND INFUSION,30-APR-2004-10CC
     Route: 042
     Dates: start: 20040412, end: 20040412
  2. BENADRYL [Concomitant]
     Indication: PREMEDICATION
     Dosage: PRE-MED BEFORE 1ST AND 2ND INFUSION

REACTIONS (8)
  - BLOOD PRESSURE ABNORMAL [None]
  - DIZZINESS [None]
  - DYSPNOEA [None]
  - HYPOTENSION [None]
  - PRURITUS [None]
  - RETCHING [None]
  - SWELLING FACE [None]
  - URTICARIA [None]
